FAERS Safety Report 9412446 (Version 1)
Quarter: 2013Q3

REPORT INFORMATION
  Report Type: Spontaneous
  Country: CO (occurrence: CO)
  Receive Date: 20130722
  Receipt Date: 20130722
  Transmission Date: 20140515
  Serious: Yes (Other)
  Sender: FDA-Public Use
  Company Number: CO-PFIZER INC-2013213118

PATIENT
  Age: 88 Year
  Sex: Male

DRUGS (3)
  1. CARDURAN [Suspect]
     Indication: PROSTATIC DISORDER
     Dosage: 2 MG, ONCE DAILY
     Route: 048
     Dates: start: 2010
  2. METOPROLOL [Concomitant]
     Indication: CARDIAC DISORDER
     Dosage: 25 MG, HALF A TABLET OF 50MG, ONCE DAILY
     Route: 048
     Dates: start: 2001
  3. ENALAPRIL [Concomitant]
     Indication: CARDIAC DISORDER
     Dosage: 20 MG, TWICE DAILY
     Route: 048
     Dates: start: 2001

REACTIONS (2)
  - Eye disorder [Unknown]
  - Hearing impaired [Unknown]
